FAERS Safety Report 8317114-6 (Version None)
Quarter: 2012Q2

REPORT INFORMATION
  Report Type: 
  Country: None (occurrence: None)
  Receive Date: 20120425
  Receipt Date: 20120423
  Transmission Date: 20120825
  Serious: Yes (Hospitalization, Other)
  Sender: FDA-Public Use
  Company Number: ADR-2010-9172

PATIENT
  Sex: Male

DRUGS (1)
  1. LIORESAL [Suspect]
     Indication: MUSCLE SPASTICITY
     Dosage: 414 MCG, DAILY, INTRATH
     Route: 037

REACTIONS (5)
  - CELLULITIS [None]
  - NO THERAPEUTIC RESPONSE [None]
  - INFUSION SITE SWELLING [None]
  - INFUSION SITE HAEMATOMA [None]
  - DEVICE ISSUE [None]
